FAERS Safety Report 24588484 (Version 3)
Quarter: 2024Q4

REPORT INFORMATION
  Report Type: Report from Study
  Country: JP (occurrence: JP)
  Receive Date: 20241107
  Receipt Date: 20241211
  Transmission Date: 20250114
  Serious: Yes (Hospitalization, Other)
  Sender: INSMED
  Company Number: JP-INSMED, INC.-2024-04252-JP

PATIENT
  Age: 76 Year
  Sex: Female

DRUGS (2)
  1. ARIKAYCE [Suspect]
     Active Substance: AMIKACIN
     Indication: Mycobacterium avium complex infection
     Dosage: UNK, UNK
     Route: 055
     Dates: start: 20241002, end: 202410
  2. ARIKAYCE [Suspect]
     Active Substance: AMIKACIN
     Dosage: UNK, UNK
     Route: 055
     Dates: start: 20241112

REACTIONS (3)
  - Chronic respiratory failure [Recovering/Resolving]
  - Physical deconditioning [Unknown]
  - Sputum retention [Unknown]

NARRATIVE: CASE EVENT DATE: 20240101
